FAERS Safety Report 10077399 (Version 1)
Quarter: 2014Q2

REPORT INFORMATION
  Report Type: Spontaneous
  Country: US (occurrence: US)
  Receive Date: 20140414
  Receipt Date: 20140414
  Transmission Date: 20141212
  Serious: No
  Sender: FDA-Public Use
  Company Number: US-PFIZER INC-2014103880

PATIENT
  Age: 86 Year
  Sex: Female
  Weight: 56.24 kg

DRUGS (2)
  1. LYRICA [Suspect]
     Indication: LIMB DISCOMFORT
     Dosage: 50 MG, 2X/DAY
     Dates: start: 2011
  2. METHADONE [Concomitant]
     Indication: BACK PAIN
     Dosage: 5 MG, 2X/DAY

REACTIONS (6)
  - Eye disorder [Unknown]
  - Limb discomfort [Unknown]
  - Paraesthesia [Unknown]
  - Insomnia [Unknown]
  - Gait disturbance [Unknown]
  - Pain [Unknown]
